FAERS Safety Report 14629184 (Version 1)
Quarter: 2018Q1

REPORT INFORMATION
  Report Type: Spontaneous
  Country: US (occurrence: US)
  Receive Date: 20180312
  Receipt Date: 20180312
  Transmission Date: 20180509
  Serious: Yes (Other)
  Sender: FDA-Public Use
  Company Number: None

PATIENT
  Age: 52 Year
  Sex: Female
  Weight: 68.04 kg

DRUGS (4)
  1. PRIBIOTICS [Concomitant]
  2. PARAGARD T 380A [Suspect]
     Active Substance: COPPER
  3. VITAMIN D [Concomitant]
     Active Substance: CHOLECALCIFEROL
  4. COQ10 [Concomitant]
     Active Substance: UBIDECARENONE

REACTIONS (2)
  - Device breakage [None]
  - Complication of device removal [None]

NARRATIVE: CASE EVENT DATE: 20180312
